FAERS Safety Report 8229735 (Version 3)
Quarter: 2012Q4

REPORT INFORMATION
  Report Type: 
  Country: US (occurrence: US)
  Receive Date: 20111104
  Receipt Date: 20120914
  Transmission Date: 20130627
  Serious: Yes (Death)
  Sender: FDA-Public Use
  Company Number: US-US-EMD SERONO, INC.-232211K08USA

PATIENT
  Age: 50 None
  Sex: Female
  Weight: 54 kg

DRUGS (14)
  1. REBIF [Suspect]
     Indication: MULTIPLE SCLEROSIS
     Route: 058
     Dates: start: 200309, end: 200505
  2. REBIF [Suspect]
     Route: 058
     Dates: start: 200507, end: 200605
  3. REBIF [Suspect]
     Route: 058
     Dates: start: 20070119
  4. LISINOPRIL [Concomitant]
     Indication: HYPERTENSION
     Route: 065
  5. FIORICET [Concomitant]
     Indication: MIGRAINE
     Route: 065
  6. ALEVE [Concomitant]
     Indication: MIGRAINE
     Route: 065
  7. AMBIEN [Concomitant]
     Indication: SLEEP DISORDER
     Route: 065
  8. ATENOLOL [Concomitant]
     Indication: PRODUCT USED FOR UNKNOWN INDICATION
     Route: 065
  9. LIPITOR [Concomitant]
     Indication: BLOOD CHOLESTEROL INCREASED
     Route: 065
     Dates: end: 200806
  10. LIPITOR [Concomitant]
     Route: 065
  11. BACLOFEN [Concomitant]
     Indication: MUSCLE SPASMS
     Route: 065
  12. XANAX [Concomitant]
     Indication: PRODUCT USED FOR UNKNOWN INDICATION
     Route: 065
  13. LEXAPRO [Concomitant]
     Indication: DEPRESSION
     Route: 065
     Dates: start: 2003
  14. SIMVASTATIN [Concomitant]
     Indication: BLOOD CHOLESTEROL INCREASED
     Route: 065

REACTIONS (3)
  - Myocardial infarction [Fatal]
  - Coronary artery occlusion [Fatal]
  - Drug eruption [Recovered/Resolved]
